FAERS Safety Report 9246990 (Version 1)
Quarter: 2013Q2

REPORT INFORMATION
  Report Type: Report from Study
  Country: CZ (occurrence: CZ)
  Receive Date: 20130422
  Receipt Date: 20130422
  Transmission Date: 20140414
  Serious: Yes (Life-Threatening, Hospitalization)
  Sender: FDA-Public Use
  Company Number: PHHO2013CZ001912

PATIENT
  Age: 78 Year
  Sex: 0
  Weight: 83 kg

DRUGS (4)
  1. BLINDED ENALAPRIL [Suspect]
     Indication: CARDIAC FAILURE CHRONIC
     Dosage: DOUBLE BLINDED
     Route: 048
     Dates: start: 20120921, end: 20121128
  2. BLINDED LCZ696 [Suspect]
     Indication: CARDIAC FAILURE CHRONIC
     Dosage: DOUBLE BLINDED
     Route: 048
     Dates: start: 20120921, end: 20121128
  3. BLINDED NO TREATMENT RECEIVED [Suspect]
     Indication: CARDIAC FAILURE CHRONIC
     Dosage: DOUBLE BLINDED
     Route: 048
     Dates: start: 20120921, end: 20121128
  4. BETALOC ZOK [Concomitant]
     Indication: CARDIAC FAILURE
     Dosage: 25 MG, 1-0-0
     Dates: start: 20121126

REACTIONS (1)
  - Ventricular fibrillation [Recovered/Resolved]
